FAERS Safety Report 4865635-0 (Version None)
Quarter: 2005Q4

REPORT INFORMATION
  Report Type: 
  Country: None (occurrence: None)
  Receive Date: 20051220
  Receipt Date: 20051206
  Transmission Date: 20060501
  Serious: Yes (Hospitalization, Other)
  Sender: FDA-Public Use
  Company Number: 2005165112

PATIENT
  Sex: Male
  Weight: 79.8331 kg

DRUGS (5)
  1. VIAGRA [Suspect]
     Indication: ERECTILE DYSFUNCTION
     Dosage: 50 MG (PRN), ORAL
     Route: 048
  2. LISINOPRIL [Concomitant]
  3. COMBIVENT (IPRATROPRIUM BROMIDE, SALBUTAMOL SULFATE) [Concomitant]
  4. ALBUTEROL [Concomitant]
  5. LIPITOR [Concomitant]

REACTIONS (7)
  - BLINDNESS [None]
  - DIVERTICULITIS [None]
  - HERPES ZOSTER [None]
  - MACULAR DEGENERATION [None]
  - OXYGEN SATURATION DECREASED [None]
  - PROCEDURAL COMPLICATION [None]
  - SURGICAL PROCEDURE REPEATED [None]
